FAERS Safety Report 7885393 (Version 8)
Quarter: 2013Q1

REPORT INFORMATION
  Report Type: Report from Study
  Country: JP (occurrence: JP)
  Receive Date: 20110405
  Receipt Date: 20130222
  Transmission Date: 20140127
  Serious: Yes (Hospitalization, Other)
  Sender: FDA-Public Use
  Company Number: PHHY2010JP58111

PATIENT
  Age: 68 Year
  Sex: Male

DRUGS (16)
  1. AMN107 [Suspect]
     Indication: CHRONIC MYELOID LEUKAEMIA
     Dosage: 400 MG, QD
     Route: 048
     Dates: start: 20090925, end: 20091013
  2. AMN107 [Suspect]
     Dosage: 200 MG, EVERY THREE DAYS
     Dates: start: 20091220, end: 20100216
  3. AMN107 [Suspect]
     Dosage: 200 MG,
     Route: 048
     Dates: start: 20100223, end: 20100223
  4. AMN107 [Suspect]
     Dosage: 200 MG,
     Route: 048
     Dates: start: 20100302, end: 20100302
  5. AMN107 [Suspect]
     Dosage: 200 MG,
     Route: 048
     Dates: start: 20100309, end: 20100309
  6. AMN107 [Suspect]
     Dosage: 200 MG,
     Route: 048
     Dates: start: 20100316, end: 20110828
  7. AMN107 [Suspect]
     Dosage: 200 MG,
     Route: 048
     Dates: start: 20100326, end: 20100326
  8. AMN107 [Suspect]
     Dosage: 200 MG, 3 TIMES A WEEK
     Route: 048
  9. AMN107 [Suspect]
     Dosage: 150 MG/DAY
     Route: 048
     Dates: start: 20110912
  10. CELESTAMINE [Concomitant]
     Indication: PROPHYLAXIS
     Dosage: 1 DF
     Route: 048
     Dates: start: 20080927, end: 20100712
  11. PLATELETS, HUMAN BLOOD [Concomitant]
     Indication: CHRONIC MYELOID LEUKAEMIA
     Dates: end: 20100612
  12. PLATELETS, HUMAN BLOOD [Concomitant]
     Dosage: 1 DF
     Route: 030
     Dates: start: 20101211
  13. PLATELETS, HUMAN BLOOD [Concomitant]
     Dosage: 1 DF
     Route: 030
  14. PLATELETS, HUMAN BLOOD [Concomitant]
     Dosage: 1 DF
     Route: 030
  15. FINIBAX [Concomitant]
     Indication: PROPHYLAXIS
     Dates: start: 20110828, end: 20110902
  16. CIPROXAN [Concomitant]
     Dosage: 600 MG
     Dates: start: 20110902, end: 20110906

REACTIONS (18)
  - Fasciitis [Recovered/Resolved]
  - Platelet count decreased [Not Recovered/Not Resolved]
  - Pneumonia [Recovered/Resolved]
  - Cellulitis [Recovered/Resolved]
  - Bile duct stone [Recovering/Resolving]
  - Colon cancer [Recovered/Resolved]
  - Procedural haemorrhage [Recovered/Resolved]
  - Jaundice cholestatic [Recovering/Resolving]
  - Blood bilirubin increased [Recovered/Resolved]
  - Blood alkaline phosphatase increased [Recovering/Resolving]
  - Alanine aminotransferase increased [Recovered/Resolved]
  - Gamma-glutamyltransferase increased [Recovered/Resolved]
  - Chronic myeloid leukaemia transformation [Recovered/Resolved]
  - Wound complication [Not Recovered/Not Resolved]
  - Hyperuricaemia [Recovered/Resolved]
  - Melaena [Recovered/Resolved]
  - Anaemia [Not Recovered/Not Resolved]
  - Blood potassium decreased [Recovered/Resolved]
